FAERS Safety Report 23417022 (Version 1)
Quarter: 2024Q1

REPORT INFORMATION
  Report Type: Report from Study
  Country: CN (occurrence: CN)
  Receive Date: 20240118
  Receipt Date: 20240118
  Transmission Date: 20240409
  Serious: Yes (Other)
  Sender: FDA-Public Use
  Company Number: CN-PFIZER INC-202400016702

PATIENT
  Age: 67 Year
  Sex: Male

DRUGS (3)
  1. SIROLIMUS [Suspect]
     Active Substance: SIROLIMUS
     Indication: Angiosarcoma
     Dosage: 2 MG, 1X/DAY
  2. SIROLIMUS [Suspect]
     Active Substance: SIROLIMUS
     Dosage: 1.5 MG, 1X/DAY; (MAINTAINED DOSE)
  3. INTERFERON ALFA-2B [Suspect]
     Active Substance: INTERFERON ALFA-2B
     Indication: Angiosarcoma
     Dosage: 3000000 IU, ALTERNATE DAY (3 MILLION UNITS QOD)

REACTIONS (2)
  - Liver injury [Unknown]
  - Mouth ulceration [Unknown]
